FAERS Safety Report 25846427 (Version 3)
Quarter: 2025Q4

REPORT INFORMATION
  Report Type: Spontaneous
  Country: CA (occurrence: CA)
  Receive Date: 20250925
  Receipt Date: 20251201
  Transmission Date: 20260117
  Serious: Yes (Other)
  Sender: PFIZER
  Company Number: CA-PFIZER INC-202500089213

PATIENT
  Age: 71 Year
  Sex: Female

DRUGS (2)
  1. RUXIENCE [Suspect]
     Active Substance: RITUXIMAB-PVVR
     Indication: Systemic scleroderma
     Dosage: 1000 MG, DAY 1 AND DAY 15
     Route: 042
     Dates: start: 20250612
  2. RUXIENCE [Suspect]
     Active Substance: RITUXIMAB-PVVR
     Indication: Rheumatoid arthritis
     Dosage: 1000 MG, DAY 1 AND DAY 15
     Route: 042
     Dates: start: 20250626

REACTIONS (5)
  - Lumbar vertebral fracture [Recovering/Resolving]
  - Intervertebral disc protrusion [Recovering/Resolving]
  - Condition aggravated [Recovering/Resolving]
  - Fatigue [Recovered/Resolved]
  - Headache [Recovered/Resolved]

NARRATIVE: CASE EVENT DATE: 20250601
